FAERS Safety Report 24280256 (Version 1)
Quarter: 2024Q3

REPORT INFORMATION
  Report Type: Report from Study
  Country: IT (occurrence: IT)
  Receive Date: 20240904
  Receipt Date: 20240904
  Transmission Date: 20241017
  Serious: Yes (Life-Threatening, Other)
  Sender: GLAXOSMITHKLINE
  Company Number: None

PATIENT

DRUGS (2)
  1. NIRAPARIB [Suspect]
     Active Substance: NIRAPARIB
     Indication: Ovarian cancer
     Dosage: 300 MG
     Route: 048
     Dates: start: 20230919
  2. NIRAPARIB [Suspect]
     Active Substance: NIRAPARIB
     Indication: Thrombocytopenia
     Dosage: 200 MG (REDUCED TO 200MG FROM 29/10/2023 FOR G3 THROMBOCYTOPENIA)
     Route: 048
     Dates: start: 20231029

REACTIONS (2)
  - Thrombocytopenia [Recovered/Resolved]
  - Anaemia [Recovered/Resolved]

NARRATIVE: CASE EVENT DATE: 20240129
